FAERS Safety Report 6964807-9 (Version None)
Quarter: 2010Q3

REPORT INFORMATION
  Report Type: 
  Country: None (occurrence: None)
  Receive Date: 20100903
  Receipt Date: 20100826
  Transmission Date: 20110219
  Serious: Yes (Hospitalization)
  Sender: FDA-Public Use
  Company Number: CA-JNJFOC-20100809248

PATIENT
  Sex: Male

DRUGS (5)
  1. REMICADE [Suspect]
     Indication: COLITIS ULCERATIVE
     Route: 042
  2. REMICADE [Suspect]
     Route: 042
  3. REMICADE [Suspect]
     Route: 042
  4. CORTICOSTEROIDS [Concomitant]
     Indication: COLITIS ULCERATIVE
  5. VENOFER [Concomitant]
     Indication: HAEMOGLOBIN DECREASED

REACTIONS (3)
  - COLITIS ULCERATIVE [None]
  - HAEMOGLOBIN DECREASED [None]
  - WEIGHT DECREASED [None]
